FAERS Safety Report 4551225-6 (Version None)
Quarter: 2005Q1

REPORT INFORMATION
  Report Type: 
  Country: None (occurrence: None)
  Receive Date: 20050106
  Receipt Date: 20041222
  Transmission Date: 20050727
  Serious: Yes (Life-Threatening, Other)
  Sender: FDA-Public Use
  Company Number: 2003JP005705

PATIENT
  Age: 35 Year
  Sex: Female
  Weight: 47 kg

DRUGS (5)
  1. PROGRAF [Suspect]
     Indication: BONE MARROW TRANSPLANT
     Dosage: SEE IMAGE
     Route: 042
     Dates: start: 20030303, end: 20030316
  2. PROGRAF [Suspect]
     Indication: BONE MARROW TRANSPLANT
     Dosage: SEE IMAGE
     Route: 042
     Dates: start: 20030317, end: 20030318
  3. PROGRAF [Suspect]
     Indication: BONE MARROW TRANSPLANT
     Dosage: SEE IMAGE
     Route: 042
     Dates: start: 20030319, end: 20030328
  4. PREDNISOLONE [Suspect]
     Dosage: 100 MG, INTRAVENOUS
     Route: 042
     Dates: start: 20030314
  5. MORPHINE [Suspect]
     Dosage: INTRAVENOUS
     Route: 042
     Dates: start: 20030321, end: 20030419

REACTIONS (7)
  - DEPRESSED LEVEL OF CONSCIOUSNESS [None]
  - DISORIENTATION [None]
  - ENCEPHALOPATHY [None]
  - MEMORY IMPAIRMENT [None]
  - NERVOUS SYSTEM DISORDER [None]
  - PSYCHIATRIC SYMPTOM [None]
  - THROMBOTIC MICROANGIOPATHY [None]
